FAERS Safety Report 12978938 (Version 1)
Quarter: 2016Q4

REPORT INFORMATION
  Report Type: Report from Study
  Country: US (occurrence: US)
  Receive Date: 20161128
  Receipt Date: 20161128
  Transmission Date: 20170207
  Serious: Yes (Other)
  Sender: FDA-Public Use
  Company Number: US-JNJFOC-20160810003

PATIENT
  Age: 76 Year
  Sex: Male

DRUGS (4)
  1. FLU [Concomitant]
     Active Substance: INFLUENZA VIRUS VACCINE
  2. IMBRUVICA [Suspect]
     Active Substance: IBRUTINIB
     Indication: CHRONIC LYMPHOCYTIC LEUKAEMIA
     Route: 048
     Dates: start: 20150710
  3. CELEXA [Concomitant]
     Active Substance: CITALOPRAM HYDROBROMIDE
  4. CITALOPRAM [Concomitant]
     Active Substance: CITALOPRAM HYDROBROMIDE

REACTIONS (9)
  - Infusion related reaction [Unknown]
  - Tremor [Unknown]
  - Bursitis [Unknown]
  - Peripheral swelling [Recovered/Resolved]
  - Vital functions abnormal [Unknown]
  - Skin exfoliation [Recovered/Resolved]
  - Infection [Recovering/Resolving]
  - Skin lesion [Recovered/Resolved]
  - Staphylococcal infection [Unknown]

NARRATIVE: CASE EVENT DATE: 201610
